FAERS Safety Report 10426084 (Version 4)
Quarter: 2015Q1

REPORT INFORMATION
  Report Type: Spontaneous
  Country: IT (occurrence: IT)
  Receive Date: 20140903
  Receipt Date: 20150106
  Transmission Date: 20150720
  Serious: Yes (Hospitalization, Other)
  Sender: FDA-Public Use
  Company Number: IT-BRISTOL-MYERS SQUIBB COMPANY-21347232

PATIENT
  Age: 89 Year
  Sex: Male

DRUGS (5)
  1. COUMADIN [Suspect]
     Active Substance: WARFARIN SODIUM
     Indication: PRODUCT USED FOR UNKNOWN INDICATION
     Dosage: 1 DF, QD
     Route: 048
     Dates: start: 20110601, end: 20140819
  2. EUTIROX [Concomitant]
     Active Substance: LEVOTHYROXINE SODIUM
  3. ENAPREN [Concomitant]
     Active Substance: ENALAPRIL MALEATE
  4. LASITONE [Concomitant]
     Active Substance: FUROSEMIDE\SPIRONOLACTONE
  5. TRIATEC [Concomitant]
     Active Substance: RAMIPRIL

REACTIONS (4)
  - Anaemia [Unknown]
  - Gravitational oedema [Recovering/Resolving]
  - Contusion [Unknown]
  - Hypocoagulable state [Unknown]

NARRATIVE: CASE EVENT DATE: 20140819
